FAERS Safety Report 4542306-1 (Version None)
Quarter: 2004Q4

REPORT INFORMATION
  Report Type: 
  Country: None (occurrence: None)
  Receive Date: 20041227
  Receipt Date: 20041220
  Transmission Date: 20050328
  Serious: Yes (Other)
  Sender: FDA-Public Use
  Company Number: 211231

PATIENT
  Age: 11 Year
  Sex: Female
  Weight: 36.3 kg

DRUGS (5)
  1. XOLAIR [Suspect]
     Indication: ASTHMA
     Dosage: 300 MG, Q2W , SUBCUTANEOUS
     Route: 058
     Dates: start: 20040419, end: 20041213
  2. SINGULAIR [Concomitant]
  3. ADVAIR (SALMETEROL XINAFOATE, FLUTICASONE PROPIONATE) [Concomitant]
  4. PRILOSEC [Concomitant]
  5. ALBUTEROL INHALER (ALBUTEROL, ALBUTEROL SULFATE) [Concomitant]

REACTIONS (1)
  - CONVULSION [None]
